FAERS Safety Report 9433785 (Version 3)
Quarter: 2013Q4

REPORT INFORMATION
  Report Type: Report from Study
  Country: CA (occurrence: CA)
  Receive Date: 20130731
  Receipt Date: 20131126
  Transmission Date: 20140711
  Serious: Yes (Other)
  Sender: FDA-Public Use
  Company Number: PHHY2013CA062485

PATIENT
  Age: 45 Year
  Sex: Female

DRUGS (6)
  1. GILENYA [Suspect]
     Indication: RELAPSING-REMITTING MULTIPLE SCLEROSIS
     Dosage: 0.5 MG, QD
     Route: 048
     Dates: start: 20130606, end: 20130719
  2. GILENYA [Suspect]
     Dosage: 0.5 MG, QD
     Route: 048
     Dates: start: 20130820
  3. CLONAZEPAM [Concomitant]
     Dosage: 1.5 DF, QID
  4. BACLOFEN [Concomitant]
     Dosage: 20 MG, QID
  5. GABAPENTIN [Concomitant]
     Dosage: 300 MG, TID
  6. ATIVAN [Concomitant]
     Dosage: 1 MG, PRN

REACTIONS (7)
  - Abasia [Recovering/Resolving]
  - Local swelling [Recovering/Resolving]
  - Lymphocyte count decreased [Unknown]
  - Weight increased [Unknown]
  - Hypoaesthesia [Unknown]
  - Paraesthesia [Unknown]
  - Vision blurred [Recovering/Resolving]
